FAERS Safety Report 14483370 (Version 1)
Quarter: 2018Q1

REPORT INFORMATION
  Report Type: Spontaneous
  Country: US (occurrence: US)
  Receive Date: 20180204
  Receipt Date: 20180204
  Transmission Date: 20180509
  Serious: Yes (Other)
  Sender: FDA-Public Use
  Company Number: US-THE PROACTIV LLC-2041347

PATIENT
  Sex: Female

DRUGS (5)
  1. PROACTIV PLUS PORE TARGETING TREATMENT [Suspect]
     Active Substance: BENZOYL PEROXIDE
     Route: 061
     Dates: start: 20180108, end: 20180115
  2. PROACTIVPLUS SKIN SMOOTHING EXFOLIATOR [Suspect]
     Active Substance: BENZOYL PEROXIDE
     Indication: ACNE
     Route: 061
     Dates: start: 20180108, end: 20180115
  3. PROACTIV PLUS COMPLEXION PERFECTING HYDRATOR [Suspect]
     Active Substance: SALICYLIC ACID
     Route: 061
     Dates: start: 20180108, end: 20180115
  4. PROACTIV CLARIFYING NIGHT ACNE TREATMENT [Suspect]
     Active Substance: SALICYLIC ACID
     Route: 061
     Dates: start: 20180108, end: 20180115
  5. PROACTIV PLUS RETEXTURIZING TONER [Suspect]
     Active Substance: SALICYLIC ACID
     Route: 061
     Dates: start: 20180108, end: 20180115

REACTIONS (11)
  - Skin irritation [Recovering/Resolving]
  - Chemical burn [None]
  - Eye swelling [Recovering/Resolving]
  - Application site erythema [Recovering/Resolving]
  - Feeling hot [Recovering/Resolving]
  - Swelling face [Recovering/Resolving]
  - Mouth swelling [Recovering/Resolving]
  - Swollen tongue [Recovering/Resolving]
  - Anaphylactic reaction [Recovering/Resolving]
  - Blister [Recovering/Resolving]
  - Eye burns [Recovering/Resolving]

NARRATIVE: CASE EVENT DATE: 20180110
